FAERS Safety Report 25942104 (Version 1)
Quarter: 2025Q4

REPORT INFORMATION
  Report Type: Report from Study
  Country: GB (occurrence: GB)
  Receive Date: 20251020
  Receipt Date: 20251020
  Transmission Date: 20260117
  Serious: Yes (Hospitalization)
  Sender: PURDUE
  Company Number: GB-NAPPMUNDI-GBR-2025-0129766

PATIENT

DRUGS (1)
  1. MORPHINE SULFATE [Suspect]
     Active Substance: MORPHINE SULFATE
     Indication: Dyspnoea
     Dosage: 5MG TWICE DAILY INCREASING TO 10MG TWICE DAILY IF INSUFFICIENT RESPONSE AND TOLERATED
     Route: 048

REACTIONS (4)
  - Abdominal pain [Unknown]
  - Urinary tract infection [Unknown]
  - Constipation [Unknown]
  - Off label use [Unknown]
